FAERS Safety Report 21623470 (Version 1)
Quarter: 2022Q4

REPORT INFORMATION
  Report Type: Other
  Country: US (occurrence: None)
  Receive Date: 20221121
  Receipt Date: 20221121
  Transmission Date: 20230113
  Serious: No
  Sender: FDA-Public Use
  Company Number: US-ROCHE-3222605

PATIENT
  Age: 45 Year
  Sex: Female
  Weight: 68.100 kg

DRUGS (4)
  1. OCREVUS [Suspect]
     Active Substance: OCRELIZUMAB
     Indication: Multiple sclerosis
     Route: 042
     Dates: start: 2021
  2. CLARITIN 24 HR [Concomitant]
     Indication: Hypersensitivity
  3. MUCINEX [Concomitant]
     Active Substance: GUAIFENESIN
  4. INFLUENZA VIRUS VACCINE [Concomitant]
     Active Substance: INFLUENZA VIRUS VACCINE

REACTIONS (2)
  - Suspected COVID-19 [Recovered/Resolved]
  - COVID-19 [Recovered/Resolved]

NARRATIVE: CASE EVENT DATE: 20211201
